FAERS Safety Report 23442383 (Version 1)
Quarter: 2024Q1

REPORT INFORMATION
  Report Type: Spontaneous
  Country: EC (occurrence: EC)
  Receive Date: 20240125
  Receipt Date: 20240125
  Transmission Date: 20240410
  Serious: Yes (Hospitalization)
  Sender: FDA-Public Use
  Company Number: EC-SUN PHARMACEUTICAL INDUSTRIES LTD-2023R1-426215

PATIENT
  Age: 37 Year
  Sex: Male

DRUGS (5)
  1. SULFAMETHOXAZOLE\TRIMETHOPRIM [Suspect]
     Active Substance: SULFAMETHOXAZOLE\TRIMETHOPRIM
     Indication: Gastroenteritis bacterial
     Dosage: UNK (800/160 MG EVERY 12 HOURS)
     Route: 065
  2. LAMIVUDINE\TENOFOVIR [Suspect]
     Active Substance: LAMIVUDINE\TENOFOVIR
     Indication: Antiretroviral therapy
     Dosage: UNK (300 MG/200 MG, DAILY)
     Route: 065
  3. DOLUTEGRAVIR [Suspect]
     Active Substance: DOLUTEGRAVIR
     Indication: Antiretroviral therapy
     Dosage: UNK (50 MG ONE TABLET A DAY)
     Route: 065
  4. TINIDAZOLE [Concomitant]
     Active Substance: TINIDAZOLE
     Indication: Giardiasis
     Dosage: UNK (2 GRAMS)
     Route: 048
  5. TINIDAZOLE [Concomitant]
     Active Substance: TINIDAZOLE
     Indication: Cyst

REACTIONS (4)
  - Lichenoid keratosis [Recovered/Resolved]
  - Eosinophilia [Recovered/Resolved]
  - Oedema [Recovered/Resolved]
  - Rash [Recovered/Resolved]
